FAERS Safety Report 13349948 (Version 1)
Quarter: 2017Q1

REPORT INFORMATION
  Report Type: Spontaneous
  Country: US (occurrence: US)
  Receive Date: 20170319
  Receipt Date: 20170319
  Transmission Date: 20170429
  Serious: Yes (Other)
  Sender: FDA-Public Use
  Company Number: None

PATIENT
  Age: 69 Year
  Sex: Female
  Weight: 128.7 kg

DRUGS (11)
  1. LANTUS [Concomitant]
     Active Substance: INSULIN GLARGINE
  2. HUMALOG [Concomitant]
     Active Substance: INSULIN LISPRO
  3. RANEXA [Concomitant]
     Active Substance: RANOLAZINE
  4. ASPIRIN. [Concomitant]
     Active Substance: ASPIRIN
  5. SYNTHROID [Concomitant]
     Active Substance: LEVOTHYROXINE SODIUM
  6. GLIMEPERIDE [Concomitant]
     Active Substance: GLIMEPIRIDE
  7. FARXIGA [Suspect]
     Active Substance: DAPAGLIFLOZIN PROPANEDIOL
     Indication: DIABETES MELLITUS
     Dosage: ?          QUANTITY:1 TABLET(S);?
     Route: 048
     Dates: start: 20150228, end: 20170311
  8. ALBUTEROL. [Concomitant]
     Active Substance: ALBUTEROL
  9. FLOVENT [Concomitant]
     Active Substance: FLUTICASONE PROPIONATE
  10. PRADAXA [Suspect]
     Active Substance: DABIGATRAN ETEXILATE MESYLATE
     Indication: ATRIAL FIBRILLATION
     Dosage: ?          QUANTITY:1 CAPSULE(S);?
     Route: 048
     Dates: start: 20170207
  11. CRESTOR [Concomitant]
     Active Substance: ROSUVASTATIN CALCIUM

REACTIONS (14)
  - Dizziness [None]
  - Red blood cell count increased [None]
  - Haemoglobin increased [None]
  - Dyspepsia [None]
  - Dehydration [None]
  - Fear [None]
  - Contusion [None]
  - Heart rate decreased [None]
  - Abdominal pain [None]
  - Hypotension [None]
  - Nausea [None]
  - Gastrooesophageal reflux disease [None]
  - Malaise [None]
  - Haematocrit increased [None]

NARRATIVE: CASE EVENT DATE: 20170312
